FAERS Safety Report 16345465 (Version 2)
Quarter: 2019Q2

REPORT INFORMATION
  Report Type: Spontaneous
  Country: BG (occurrence: BG)
  Receive Date: 20190523
  Receipt Date: 20190610
  Transmission Date: 20190711
  Serious: Yes (Death, Hospitalization)
  Sender: FDA-Public Use
  Company Number: BG-ROCHE-2322832

PATIENT
  Age: 66 Year
  Sex: Male

DRUGS (1)
  1. TECENTRIQ [Suspect]
     Active Substance: ATEZOLIZUMAB
     Indication: LUNG NEOPLASM MALIGNANT
     Route: 042
     Dates: start: 20190405

REACTIONS (6)
  - Dyspnoea [Fatal]
  - Renal failure [Fatal]
  - Hyperleukocytosis [Fatal]
  - Fatigue [Fatal]
  - General physical health deterioration [Fatal]
  - Ascites [Fatal]

NARRATIVE: CASE EVENT DATE: 20190424
